FAERS Safety Report 4514846-2 (Version None)
Quarter: 2004Q4

REPORT INFORMATION
  Report Type: 
  Country: None (occurrence: None)
  Receive Date: 20041201
  Receipt Date: 20041123
  Transmission Date: 20050328
  Serious: Yes (Other)
  Sender: FDA-Public Use
  Company Number: ES-BRISTOL-MYERS SQUIBB COMPANY-12776860

PATIENT
  Age: 40 Year
  Sex: Female

DRUGS (3)
  1. ZERIT [Suspect]
     Indication: HIV INFECTION
  2. LAMIVUDINE [Concomitant]
  3. LOPINAVIR + RITONAVIR [Concomitant]

REACTIONS (1)
  - PORTAL VEIN THROMBOSIS [None]
